FAERS Safety Report 25415706 (Version 1)
Quarter: 2025Q2

REPORT INFORMATION
  Report Type: Spontaneous
  Country: ES (occurrence: ES)
  Receive Date: 20250610
  Receipt Date: 20250610
  Transmission Date: 20250717
  Serious: Yes (Hospitalization)
  Sender: BRISTOL-MYERS SQUIBB COMPANY
  Company Number: None

PATIENT
  Age: 79 Year
  Sex: Female

DRUGS (10)
  1. NIVOLUMAB [Suspect]
     Active Substance: NIVOLUMAB
     Indication: Transitional cell carcinoma
     Dosage: 240.0 MG C/14 DAYS
     Route: 042
     Dates: start: 20231219
  2. CALCIFEDIOL [Concomitant]
     Active Substance: CALCIFEDIOL
     Indication: Vitamin D deficiency
     Dosage: 16000.0 IU C/30 DAYS, 10 DRINKABLE AMPOULES OF 1.5 ML
     Route: 048
     Dates: start: 20200808
  3. CANDESARTAN CILEXETIL [Concomitant]
     Active Substance: CANDESARTAN CILEXETIL
     Indication: Essential hypertension
     Route: 048
     Dates: start: 20230623
  4. QUETIAPINE QUALIGEN [Concomitant]
     Indication: Product used for unknown indication
     Route: 048
     Dates: start: 20230831
  5. ASPIRIN [Concomitant]
     Active Substance: ASPIRIN
     Indication: Product used for unknown indication
     Route: 048
     Dates: start: 20230831
  6. FOLIC ACID [Concomitant]
     Active Substance: FOLIC ACID
     Indication: Anaemia folate deficiency
     Route: 048
     Dates: start: 20230901
  7. PRISTIQ EXTENDED-RELEASE [Concomitant]
     Active Substance: DESVENLAFAXINE SUCCINATE
     Indication: Adjustment disorder with depressed mood
     Route: 048
     Dates: start: 20240103
  8. DOXAZOSIN MESYLATE [Concomitant]
     Active Substance: DOXAZOSIN MESYLATE
     Indication: Essential hypertension
     Route: 048
     Dates: start: 20230406
  9. ZEMPLAR [Concomitant]
     Active Substance: PARICALCITOL
     Indication: Hyperparathyroidism secondary
     Route: 048
     Dates: start: 20231025
  10. IRON [Concomitant]
     Active Substance: IRON
     Indication: Iron deficiency anaemia
     Route: 048
     Dates: start: 20231228

REACTIONS (1)
  - Hypertension [Recovered/Resolved]

NARRATIVE: CASE EVENT DATE: 20240215
